FAERS Safety Report 17629360 (Version 2)
Quarter: 2021Q1

REPORT INFORMATION
  Report Type: Spontaneous
  Country: US (occurrence: US)
  Receive Date: 20200406
  Receipt Date: 20210225
  Transmission Date: 20210419
  Serious: No
  Sender: FDA-Public Use
  Company Number: US-RECORDATI RARE DISEASES-2082378

PATIENT
  Age: 65 Year
  Sex: Male

DRUGS (18)
  1. CYSTADANE [Suspect]
     Active Substance: BETAINE
     Indication: HOMOCYSTINURIA
     Dates: start: 2019, end: 2019
  2. LOSARTAN/HCTZ [Concomitant]
     Active Substance: HYDROCHLOROTHIAZIDE\LOSARTAN
  3. VASCEPA [Concomitant]
     Active Substance: ICOSAPENT ETHYL
  4. JARDIANCE [Concomitant]
     Active Substance: EMPAGLIFLOZIN
  5. LYRICA [Concomitant]
     Active Substance: PREGABALIN
  6. TRAMADOL. [Concomitant]
     Active Substance: TRAMADOL
  7. BUMETANIDE. [Concomitant]
     Active Substance: BUMETANIDE
  8. FINASTERIDE. [Concomitant]
     Active Substance: FINASTERIDE
  9. CYSTADANE [Suspect]
     Active Substance: BETAINE
     Dates: start: 2019
  10. CYSTADANE [Suspect]
     Active Substance: BETAINE
  11. EZETIMIBE. [Concomitant]
     Active Substance: EZETIMIBE
  12. POTASSIUM CHLORIDE. [Concomitant]
     Active Substance: POTASSIUM CHLORIDE
  13. NIFEDIPINE. [Concomitant]
     Active Substance: NIFEDIPINE
  14. PRAVASTATIN. [Concomitant]
     Active Substance: PRAVASTATIN
  15. CYCLOBENZAPRINE. [Concomitant]
     Active Substance: CYCLOBENZAPRINE
  16. DULOXETINE. [Concomitant]
     Active Substance: DULOXETINE
  17. LEVOTHYROXINE. [Concomitant]
     Active Substance: LEVOTHYROXINE
  18. COLLAGENASE SANTYL [Concomitant]
     Active Substance: COLLAGENASE CLOSTRIDIUM HISTOLYTICUM

REACTIONS (3)
  - Diarrhoea [Recovering/Resolving]
  - Intentional product misuse [Unknown]
  - Product use issue [Unknown]

NARRATIVE: CASE EVENT DATE: 2019
